FAERS Safety Report 12579389 (Version 1)
Quarter: 2016Q3

REPORT INFORMATION
  Report Type: Spontaneous
  Country: US (occurrence: US)
  Receive Date: 20160721
  Receipt Date: 20160721
  Transmission Date: 20161109
  Serious: No
  Sender: FDA-Public Use
  Company Number: US-GLAXOSMITHKLINE-US2016GSK100319

PATIENT
  Sex: Female

DRUGS (1)
  1. BREO ELLIPTA [Suspect]
     Active Substance: FLUTICASONE FUROATE\VILANTEROL TRIFENATATE
     Indication: PRODUCT USED FOR UNKNOWN INDICATION
     Dosage: 200/25 MCG UNK, U
     Dates: start: 2014, end: 201606

REACTIONS (3)
  - Aphonia [Recovered/Resolved]
  - Activities of daily living impaired [Unknown]
  - Dystonia [Unknown]

NARRATIVE: CASE EVENT DATE: 201509
